FAERS Safety Report 10177130 (Version 1)
Quarter: 2014Q2

REPORT INFORMATION
  Report Type: Spontaneous
  Country: FR (occurrence: FR)
  Receive Date: 20140516
  Receipt Date: 20140516
  Transmission Date: 20141212
  Serious: Yes (Other)
  Sender: FDA-Public Use
  Company Number: BE-DSJP-DSE-2014-107571

PATIENT
  Sex: 0

DRUGS (2)
  1. SEVIKAR 20 MG/ 5 MG [Suspect]
     Indication: HYPERTENSION
     Dosage: UNK
     Route: 048
     Dates: end: 20140315
  2. CRESTOR [Suspect]
     Indication: HYPERCHOLESTEROLAEMIA
     Dosage: UNK
     Route: 048
     Dates: end: 201403

REACTIONS (5)
  - Hepatocellular injury [Recovered/Resolved]
  - Hepatocellular injury [None]
  - Nausea [None]
  - Eating disorder [None]
  - Hepatomegaly [None]
